FAERS Safety Report 6422091-9 (Version None)
Quarter: 2009Q4

REPORT INFORMATION
  Report Type: 
  Country: None (occurrence: None)
  Receive Date: 20091030
  Receipt Date: 20091020
  Transmission Date: 20100525
  Serious: No
  Sender: FDA-Public Use
  Company Number: US-JNJFOC-20091007033

PATIENT
  Sex: Female

DRUGS (3)
  1. DURAGESIC-100 [Suspect]
     Indication: PAIN
     Dosage: 100 UG/HR X 3
     Route: 062
  2. OXYCODONE [Concomitant]
     Indication: PAIN
     Dosage: 5 MG 3 TIMES A DAY
     Route: 048
  3. ACTIQ [Concomitant]
     Indication: PAIN
     Route: 065

REACTIONS (2)
  - INAPPROPRIATE SCHEDULE OF DRUG ADMINISTRATION [None]
  - THERAPEUTIC RESPONSE DECREASED [None]
